FAERS Safety Report 6308750-7 (Version None)
Quarter: 2009Q3

REPORT INFORMATION
  Report Type: 
  Country: None (occurrence: None)
  Receive Date: 20090813
  Receipt Date: 20080227
  Transmission Date: 20100115
  Serious: No
  Sender: FDA-Public Use
  Company Number: US-ALLERGAN-0802353US

PATIENT

DRUGS (1)
  1. COMBIGAN [Suspect]
     Indication: GLAUCOMA

REACTIONS (1)
  - VISION BLURRED [None]
